FAERS Safety Report 5509357-1 (Version None)
Quarter: 2007Q4

REPORT INFORMATION
  Report Type: 
  Country: None (occurrence: None)
  Receive Date: 20071107
  Receipt Date: 20071026
  Transmission Date: 20080405
  Serious: Yes (Hospitalization)
  Sender: FDA-Public Use
  Company Number: JP-PFIZER INC-2007090931

PATIENT
  Age: 48 Year
  Sex: Male

DRUGS (6)
  1. CABERGOLINE [Suspect]
     Indication: DEPRESSION
     Dates: start: 20070403, end: 20071019
  2. RIVOTRIL [Concomitant]
  3. LITHIUM CARBONATE [Concomitant]
  4. EPADEL [Concomitant]
  5. TRYPTANOL [Concomitant]
  6. ALLOPURINOL [Concomitant]

REACTIONS (3)
  - CARDIAC VALVE DISEASE [None]
  - CONGESTIVE CARDIOMYOPATHY [None]
  - PLEURAL EFFUSION [None]
